FAERS Safety Report 5164227-6 (Version None)
Quarter: 2006Q4

REPORT INFORMATION
  Report Type: 
  Country: None (occurrence: None)
  Receive Date: 20060918
  Receipt Date: 20050929
  Transmission Date: 20070319
  Serious: Yes (Hospitalization)
  Sender: FDA-Public Use
  Company Number: US-JNJFOC-20051000539

PATIENT
  Age: 13 Year
  Sex: Female
  Weight: 41.7309 kg

DRUGS (1)
  1. TOPAMAX [Suspect]
     Indication: MIGRAINE PROPHYLAXIS
     Dosage: 25 MG, 1 IN 1 DAY, ORAL
     Route: 048
     Dates: start: 20050922

REACTIONS (4)
  - ABNORMAL BEHAVIOUR [None]
  - EYE PAIN [None]
  - HEADACHE [None]
  - MYDRIASIS [None]
